FAERS Safety Report 6391708-X (Version None)
Quarter: 2009Q4

REPORT INFORMATION
  Report Type: 
  Country: None (occurrence: None)
  Receive Date: 20091007
  Receipt Date: 20090814
  Transmission Date: 20100525
  Serious: No
  Sender: FDA-Public Use
  Company Number: US-BAYER-200924768NA

PATIENT
  Age: 35 Year
  Sex: Female

DRUGS (2)
  1. MIRENA [Suspect]
     Indication: CONTRACEPTION
     Dosage: CONTINUOUS
     Route: 015
     Dates: start: 20060101
  2. LEVOTHROID [Concomitant]

REACTIONS (3)
  - ANAEMIA [None]
  - MEDICAL DEVICE COMPLICATION [None]
  - MENORRHAGIA [None]
